FAERS Safety Report 25405000 (Version 1)
Quarter: 2025Q2

REPORT INFORMATION
  Report Type: Spontaneous
  Country: FR (occurrence: FR)
  Receive Date: 20250606
  Receipt Date: 20250606
  Transmission Date: 20250716
  Serious: Yes (Other)
  Sender: RANBAXY
  Company Number: FR-SUN PHARMACEUTICAL INDUSTRIES LTD-2025RR-511277

PATIENT
  Age: 9 Year
  Sex: Female
  Weight: 30 kg

DRUGS (1)
  1. RISPERIDONE [Suspect]
     Active Substance: RISPERIDONE
     Indication: Mental disorder
     Route: 048
     Dates: end: 20250129

REACTIONS (4)
  - Oculogyric crisis [Recovered/Resolved]
  - Dysarthria [Recovered/Resolved]
  - Torticollis [Recovered/Resolved]
  - Incorrect dose administered [Recovered/Resolved]

NARRATIVE: CASE EVENT DATE: 20250129
